FAERS Safety Report 9964353 (Version 1)
Quarter: 2014Q1

REPORT INFORMATION
  Report Type: Report from Study
  Country: JP (occurrence: JP)
  Receive Date: 20140305
  Receipt Date: 20140305
  Transmission Date: 20141002
  Serious: Yes (Other)
  Sender: FDA-Public Use
  Company Number: JP-GLAXOSMITHKLINE-B0958038A

PATIENT
  Age: 85 Year
  Sex: Female

DRUGS (6)
  1. ARIXTRA [Suspect]
     Indication: THROMBOSIS PROPHYLAXIS
     Dosage: 1.5MG PER DAY
     Route: 058
     Dates: start: 20100211, end: 20100212
  2. DIOVAN [Concomitant]
     Indication: HYPERTENSION
     Dosage: 80MG PER DAY
     Route: 048
  3. PLETAAL [Concomitant]
     Indication: CEREBRAL INFARCTION
     Dosage: 50MG TWICE PER DAY
     Route: 048
  4. AMLODIPINE [Concomitant]
     Indication: HYPERTENSION
     Dosage: 5MG PER DAY
     Route: 048
  5. ASPARA-CA [Concomitant]
     Indication: OSTEOPOROSIS
     Dosage: 200MG TWICE PER DAY
     Route: 048
  6. FOSAMAC [Concomitant]
     Indication: OSTEOPOROSIS
     Dosage: 35MG WEEKLY
     Route: 048

REACTIONS (3)
  - Haemorrhage [Unknown]
  - Haemoglobin decreased [Recovering/Resolving]
  - Renal impairment [Recovering/Resolving]
